FAERS Safety Report 23231796 (Version 2)
Quarter: 2023Q4

REPORT INFORMATION
  Report Type: Spontaneous
  Country: US (occurrence: US)
  Receive Date: 20231127
  Receipt Date: 20231213
  Transmission Date: 20240109
  Serious: Yes (Hospitalization)
  Sender: FDA-Public Use
  Company Number: US-INCYTE CORPORATION-2023IN012014

PATIENT

DRUGS (2)
  1. JAKAFI [Suspect]
     Active Substance: RUXOLITINIB
     Indication: Dermatitis atopic
     Dosage: 5 MILLIGRAM, BID (DISSOLVE 1 TABLET IN 10 ML OF WATER AND DRINK TWICE DAILY)
     Route: 048
     Dates: start: 20230815
  2. JAKAFI [Suspect]
     Active Substance: RUXOLITINIB
     Dosage: 10 MILLIGRAM, BID (DISSOLVE 1 TABLET (10 MG TOTAL) WITH 10 ML OF WATER AND GIVE TWICE DAILY)
     Route: 048
     Dates: start: 20230815

REACTIONS (3)
  - Hepatic enzyme increased [Unknown]
  - Wrong technique in product usage process [Unknown]
  - Off label use [Unknown]

NARRATIVE: CASE EVENT DATE: 20230815
